FAERS Safety Report 5405583-0 (Version None)
Quarter: 2007Q3

REPORT INFORMATION
  Report Type: 
  Country: None (occurrence: None)
  Receive Date: 20070803
  Receipt Date: 20070726
  Transmission Date: 20080115
  Serious: Yes (Hospitalization)
  Sender: FDA-Public Use
  Company Number: JP-ABBOTT-07P-087-0371539-00

PATIENT
  Sex: Male

DRUGS (8)
  1. FENOFIBRATE [Suspect]
     Indication: HYPERLIPIDAEMIA
     Route: 048
     Dates: start: 20070210, end: 20070410
  2. CLARITHROMYCIN [Concomitant]
     Indication: DRUG USE FOR UNKNOWN INDICATION
     Dates: start: 20070210, end: 20070216
  3. LOXOPROFEN SODIUM [Concomitant]
     Indication: DRUG USE FOR UNKNOWN INDICATION
     Dates: start: 20070210, end: 20070216
  4. DIPROPHYLLINE/DIHYDROCODEINE PHOSPH/DL-METHYLEPHEDRINE HYDROCHLORIDEE [Concomitant]
     Indication: DRUG USE FOR UNKNOWN INDICATION
     Dates: start: 20070210, end: 20070216
  5. AMBROXOL HYDROCHLORIDE [Concomitant]
     Indication: DRUG USE FOR UNKNOWN INDICATION
     Dates: start: 20070210, end: 20070216
  6. MEQUITAZINE [Concomitant]
     Indication: DRUG USE FOR UNKNOWN INDICATION
     Dates: start: 20070215, end: 20070218
  7. NICOTINE [Concomitant]
     Indication: DRUG USE FOR UNKNOWN INDICATION
  8. DEXTROMETHORPHAN HYDROBROMIDE [Concomitant]
     Indication: DRUG USE FOR UNKNOWN INDICATION
     Dates: start: 20070215, end: 20070218

REACTIONS (5)
  - FATIGUE [None]
  - HAEMATOCRIT DECREASED [None]
  - MYELODYSPLASTIC SYNDROME [None]
  - PAIN [None]
  - RED BLOOD CELL COUNT DECREASED [None]
